FAERS Safety Report 22307381 (Version 1)
Quarter: 2023Q2

REPORT INFORMATION
  Report Type: Spontaneous
  Country: US (occurrence: US)
  Receive Date: 20230511
  Receipt Date: 20230511
  Transmission Date: 20230722
  Serious: Yes (Other)
  Sender: FDA-Public Use
  Company Number: US-MLMSERVICE-20230420-4240029-1

PATIENT
  Age: 59 Year
  Sex: Female

DRUGS (2)
  1. NAPROXEN [Suspect]
     Active Substance: NAPROXEN
     Indication: Systemic lupus erythematosus
     Dosage: UNKNOWN (CHRONIC USE)
     Route: 065
  2. NAPROXEN [Suspect]
     Active Substance: NAPROXEN
     Indication: Arthritis

REACTIONS (3)
  - Gastrointestinal disorder [Recovering/Resolving]
  - Jejunal ulcer [Recovering/Resolving]
  - Iron deficiency anaemia [Recovering/Resolving]
